FAERS Safety Report 4955209-5 (Version None)
Quarter: 2006Q1

REPORT INFORMATION
  Report Type: 
  Country: None (occurrence: None)
  Receive Date: 20060322
  Receipt Date: 20060313
  Transmission Date: 20060701
  Serious: Yes (Hospitalization, Other)
  Sender: FDA-Public Use
  Company Number: 2006035376

PATIENT
  Sex: Male
  Weight: 86.1834 kg

DRUGS (2)
  1. LIPITOR [Suspect]
     Indication: BLOOD CHOLESTEROL INCREASED
     Dosage: 10 MG (10 MG, 1 IN 1 D), ORAL
     Route: 048
  2. PROBENECID W/COLCHICINE                          (COLCHICINE, PROBENEC [Concomitant]

REACTIONS (11)
  - ABASIA [None]
  - AMYOTROPHIC LATERAL SCLEROSIS [None]
  - BLOOD CHOLESTEROL DECREASED [None]
  - BODY HEIGHT DECREASED [None]
  - CONSTIPATION [None]
  - LOSS OF CONTROL OF LEGS [None]
  - MOTOR NEURONE DISEASE [None]
  - PARALYSIS [None]
  - TREATMENT NONCOMPLIANCE [None]
  - VIRAL INFECTION [None]
  - WRONG TECHNIQUE IN DRUG USAGE PROCESS [None]
